FAERS Safety Report 5453930-6 (Version None)
Quarter: 2007Q3

REPORT INFORMATION
  Report Type: 
  Country: None (occurrence: None)
  Receive Date: 20070917
  Receipt Date: 20070906
  Transmission Date: 20080115
  Serious: Yes (Other)
  Sender: FDA-Public Use
  Company Number: AU-ROCHE-516735

PATIENT

DRUGS (2)
  1. XELODA [Suspect]
     Indication: DRUG USE FOR UNKNOWN INDICATION
     Route: 065
  2. CHEMOTHERAPY [Concomitant]
     Dosage: IT WAS REPORTED THAT THE PATIENT WAS RECEIVING TWO OTHER CHEMOTHERAPY DRUGS.

REACTIONS (1)
  - HAEMOLYSIS [None]
